FAERS Safety Report 20890295 (Version 17)
Quarter: 2023Q2

REPORT INFORMATION
  Report Type: Spontaneous
  Country: JP (occurrence: JP)
  Receive Date: 20220530
  Receipt Date: 20230501
  Transmission Date: 20230722
  Serious: Yes (Life-Threatening, Other)
  Sender: FDA-Public Use
  Company Number: JP-ASTELLAS-2022JP007623

PATIENT
  Age: 75 Year
  Sex: Male

DRUGS (362)
  1. XOSPATA [Suspect]
     Active Substance: GILTERITINIB
     Indication: Acute myeloid leukaemia recurrent
     Dosage: 120 MG, ONCE DAILY (10:00 IN THE MORNING)
     Route: 048
     Dates: start: 20220521, end: 20220702
  2. XOSPATA [Suspect]
     Active Substance: GILTERITINIB
     Dosage: 40 MG, ONCE DAILY (10:00 IN THE MORNING)
     Route: 048
     Dates: start: 20220703, end: 20220706
  3. XOSPATA [Suspect]
     Active Substance: GILTERITINIB
     Dosage: 160 MG, ONCE DAILY (10:00 IN THE MORNING)
     Route: 048
     Dates: start: 20220707, end: 20220713
  4. XOSPATA [Suspect]
     Active Substance: GILTERITINIB
     Dosage: 80 MG, ONCE DAILY (10:00 IN THE MORNING)
     Route: 048
     Dates: start: 20220802, end: 20220817
  5. XOSPATA [Suspect]
     Active Substance: GILTERITINIB
     Dosage: 120 MG, ONCE DAILY (10:00 IN THE MORNING)
     Route: 048
     Dates: start: 20220818, end: 20220928
  6. XOSPATA [Suspect]
     Active Substance: GILTERITINIB
     Dosage: UNK, UNK, UNKNOWN FREQ.
     Route: 048
     Dates: start: 20221215, end: 20230101
  7. VENETOCLAX [Concomitant]
     Active Substance: VENETOCLAX
     Indication: Product used for unknown indication
     Dosage: UNK UNK, UNKNOWN FREQ.
     Route: 065
  8. VANCOMYCIN [Concomitant]
     Active Substance: VANCOMYCIN
     Indication: Pyrexia
     Dosage: UNK UNK, UNKNOWN FREQ.
     Route: 065
  9. ENTRESTO [Concomitant]
     Active Substance: SACUBITRIL\VALSARTAN
     Indication: Product used for unknown indication
     Dosage: 100 MG, TWICE DAILY (AFTER BREAKFAST AND DINNER)
     Route: 048
     Dates: start: 20220501, end: 20220508
  10. ENTRESTO [Concomitant]
     Active Substance: SACUBITRIL\VALSARTAN
     Dosage: 200 MG, TWICE DAILY (AFTER BREAKFAST AND DINNER)
     Route: 048
     Dates: start: 20220509, end: 20220930
  11. AMLODIPINE [Concomitant]
     Active Substance: AMLODIPINE BESYLATE
     Indication: Product used for unknown indication
     Dosage: 10 MG, ONCE DAILY (AFTER BREAKFAST)
     Route: 048
     Dates: start: 20220501, end: 20220601
  12. AMLODIPINE [Concomitant]
     Active Substance: AMLODIPINE BESYLATE
     Dosage: 5 MG, ONCE DAILY (AFTER BREAKFAST)
     Route: 048
     Dates: start: 20220602, end: 20220930
  13. ASPIRIN [Concomitant]
     Active Substance: ASPIRIN
     Indication: Product used for unknown indication
     Dosage: 100 MG, ONCE DAILY (AFTER BREAKFAST)
     Route: 048
     Dates: start: 20220501, end: 20220906
  14. RABEPRAZOLE SODIUM [Concomitant]
     Active Substance: RABEPRAZOLE SODIUM
     Indication: Product used for unknown indication
     Dosage: 10 MG, ONCE DAILY (AFTER BREAKFAST)
     Route: 048
     Dates: start: 20220501, end: 20220921
  15. CANDESARTAN [Concomitant]
     Active Substance: CANDESARTAN
     Indication: Product used for unknown indication
     Dosage: 8 MG, ONCE DAILY (AFTER BREAKFAST)
     Route: 048
     Dates: start: 20220501, end: 20220508
  16. ITRACONAZOLE [Concomitant]
     Active Substance: ITRACONAZOLE
     Indication: Product used for unknown indication
     Dosage: 20 ML, ONCE DAILY (BEFORE BEDTIME)
     Route: 048
     Dates: start: 20220501, end: 20220614
  17. ITRACONAZOLE [Concomitant]
     Active Substance: ITRACONAZOLE
     Dosage: 20 ML, ONCE DAILY (BEFORE BEDTIME)
     Route: 048
     Dates: start: 20220623, end: 20220910
  18. MIROGABALIN BESYLATE [Concomitant]
     Active Substance: MIROGABALIN BESYLATE
     Indication: Product used for unknown indication
     Dosage: 15 MG, THRICE DAILY (AFTER BREAKFAST, LUNCH AND DINNER)
     Route: 048
     Dates: start: 20220501, end: 20220602
  19. MIROGABALIN BESYLATE [Concomitant]
     Active Substance: MIROGABALIN BESYLATE
     Dosage: 5 MG, THRICE DAILY (AFTER BREAKFAST, LUNCH AND DINNER)
     Route: 048
     Dates: start: 20220603, end: 20220605
  20. MIROGABALIN BESYLATE [Concomitant]
     Active Substance: MIROGABALIN BESYLATE
     Dosage: 10 MG, THRICE DAILY (AFTER BREAKFAST, LUNCH AND DINNER)
     Route: 048
     Dates: start: 20220606, end: 20220609
  21. MIROGABALIN BESYLATE [Concomitant]
     Active Substance: MIROGABALIN BESYLATE
     Dosage: 15 MG, THRICE DAILY (AFTER BREAKFAST, LUNCH AND DINNER)
     Route: 048
     Dates: start: 20220610, end: 20220930
  22. AMBROXOL HYDROCHLORIDE [Concomitant]
     Active Substance: AMBROXOL HYDROCHLORIDE
     Indication: Product used for unknown indication
     Dosage: 45 MG, THRICE DAILY (AFTER BREAKFAST, LUNCH AND DINNER)
     Route: 048
     Dates: start: 20220501, end: 20220906
  23. FUROSEMIDE [Concomitant]
     Active Substance: FUROSEMIDE
     Indication: Product used for unknown indication
     Dosage: 20 MG, TWICE DAILY (AFTER BREAKFAST AND LUNCH)
     Route: 048
     Dates: start: 20220501, end: 20220501
  24. FUROSEMIDE [Concomitant]
     Active Substance: FUROSEMIDE
     Dosage: 40 MG, TWICE DAILY (AFTER BREAKFAST, LUNCH AND DINNER)
     Route: 048
     Dates: start: 20220518, end: 20220531
  25. FUROSEMIDE [Concomitant]
     Active Substance: FUROSEMIDE
     Dosage: 40 MG, TWICE DAILY (AFTER BREAKFAST, LUNCH AND DINNER)
     Route: 048
     Dates: start: 20220601, end: 20220601
  26. FUROSEMIDE [Concomitant]
     Active Substance: FUROSEMIDE
     Dosage: 20 MG, TWICE DAILY (AFTER BREAKFAST, LUNCH AND DINNER)
     Route: 048
     Dates: start: 20220602, end: 20220831
  27. FUROSEMIDE [Concomitant]
     Active Substance: FUROSEMIDE
     Dosage: 40 MG, TWICE DAILY (AFTER BREAKFAST, LUNCH AND DINNER)
     Route: 048
     Dates: start: 20220901, end: 20220930
  28. HUMALOG [Concomitant]
     Active Substance: INSULIN LISPRO
     Indication: Product used for unknown indication
     Dosage: 16 UNITS, ONCE DAILY
     Route: 065
     Dates: start: 20220501, end: 20220518
  29. HUMALOG [Concomitant]
     Active Substance: INSULIN LISPRO
     Dosage: 6 UNITS, ONCE DAILY
     Route: 065
     Dates: start: 20220519, end: 20220519
  30. HUMALOG [Concomitant]
     Active Substance: INSULIN LISPRO
     Dosage: 4 UNITS, ONCE DAILY
     Route: 065
     Dates: start: 20220520, end: 20220520
  31. HUMALOG [Concomitant]
     Active Substance: INSULIN LISPRO
     Dosage: 16 UNITS, ONCE DAILY
     Route: 065
     Dates: start: 20220521, end: 20220624
  32. HUMALOG [Concomitant]
     Active Substance: INSULIN LISPRO
     Dosage: 18 UNITS, ONCE DAILY
     Route: 065
     Dates: start: 20220625, end: 20220906
  33. HUMALOG [Concomitant]
     Active Substance: INSULIN LISPRO
     Dosage: 30 UNITS, ONCE DAILY
     Route: 065
     Dates: start: 20220907, end: 20220907
  34. HUMALOG [Concomitant]
     Active Substance: INSULIN LISPRO
     Dosage: 36 UNITS, ONCE DAILY
     Route: 065
     Dates: start: 20220908, end: 20220909
  35. HUMALOG [Concomitant]
     Active Substance: INSULIN LISPRO
     Dosage: 30 UNITS, ONCE DAILY
     Route: 065
     Dates: start: 20220910, end: 20220912
  36. HUMALOG [Concomitant]
     Active Substance: INSULIN LISPRO
     Dosage: 12 UNITS, ONCE DAILY
     Route: 065
     Dates: start: 20220913, end: 20220916
  37. HUMALOG [Concomitant]
     Active Substance: INSULIN LISPRO
     Dosage: 24 UNITS, ONCE DAILY
     Route: 065
     Dates: start: 20220917, end: 20220917
  38. HUMALOG [Concomitant]
     Active Substance: INSULIN LISPRO
     Dosage: 30 UNITS, ONCE DAILY
     Route: 065
     Dates: start: 20220918, end: 20220920
  39. HUMALOG [Concomitant]
     Active Substance: INSULIN LISPRO
     Dosage: 18 UNITS, ONCE DAILY
     Route: 065
     Dates: start: 20220921, end: 20220930
  40. INSULIN GLARGINE [Concomitant]
     Active Substance: INSULIN GLARGINE
     Indication: Product used for unknown indication
     Dosage: 2 UNITS, ONCE DAILY
     Route: 065
     Dates: start: 20220501, end: 20220501
  41. INSULIN GLARGINE [Concomitant]
     Active Substance: INSULIN GLARGINE
     Dosage: 4 UNITS, ONCE DAILY
     Route: 065
     Dates: start: 20220502, end: 20220518
  42. INSULIN GLARGINE [Concomitant]
     Active Substance: INSULIN GLARGINE
     Dosage: 4 UNITS, ONCE DAILY
     Route: 065
     Dates: start: 20220520, end: 20220624
  43. INSULIN GLARGINE [Concomitant]
     Active Substance: INSULIN GLARGINE
     Dosage: 8 UNITS, ONCE DAILY
     Route: 065
     Dates: start: 20220625, end: 20220720
  44. INSULIN GLARGINE [Concomitant]
     Active Substance: INSULIN GLARGINE
     Dosage: 16 UNITS, ONCE DAILY
     Route: 065
     Dates: start: 20220721, end: 20220728
  45. INSULIN GLARGINE [Concomitant]
     Active Substance: INSULIN GLARGINE
     Dosage: 14 UNITS, ONCE DAILY
     Route: 065
     Dates: start: 20220729, end: 20220906
  46. INSULIN GLARGINE [Concomitant]
     Active Substance: INSULIN GLARGINE
     Dosage: 28 UNITS, ONCE DAILY
     Route: 065
     Dates: start: 20220907, end: 20220907
  47. INSULIN GLARGINE [Concomitant]
     Active Substance: INSULIN GLARGINE
     Dosage: 24 UNITS, ONCE DAILY
     Route: 065
     Dates: start: 20220908, end: 20220908
  48. INSULIN GLARGINE [Concomitant]
     Active Substance: INSULIN GLARGINE
     Dosage: 14 UNITS, ONCE DAILY
     Route: 065
     Dates: start: 20220909, end: 20220912
  49. INSULIN GLARGINE [Concomitant]
     Active Substance: INSULIN GLARGINE
     Dosage: 6 UNITS, ONCE DAILY
     Route: 065
     Dates: start: 20220917, end: 20220930
  50. CEFEPIME HYDROCHLORIDE [Concomitant]
     Active Substance: CEFEPIME HYDROCHLORIDE
     Indication: Product used for unknown indication
     Route: 065
     Dates: start: 20220501, end: 20220502
  51. CEFEPIME HYDROCHLORIDE [Concomitant]
     Active Substance: CEFEPIME HYDROCHLORIDE
     Route: 065
     Dates: start: 20220503, end: 20220503
  52. CEFEPIME HYDROCHLORIDE [Concomitant]
     Active Substance: CEFEPIME HYDROCHLORIDE
     Route: 065
     Dates: start: 20220605, end: 20220605
  53. CEFEPIME HYDROCHLORIDE [Concomitant]
     Active Substance: CEFEPIME HYDROCHLORIDE
     Route: 065
     Dates: start: 20220606, end: 20220612
  54. CEFEPIME HYDROCHLORIDE [Concomitant]
     Active Substance: CEFEPIME HYDROCHLORIDE
     Route: 065
     Dates: start: 20220613, end: 20220613
  55. CEFEPIME HYDROCHLORIDE [Concomitant]
     Active Substance: CEFEPIME HYDROCHLORIDE
     Route: 065
     Dates: start: 20220701, end: 20220704
  56. CEFEPIME HYDROCHLORIDE [Concomitant]
     Active Substance: CEFEPIME HYDROCHLORIDE
     Route: 065
     Dates: start: 20220705, end: 20220705
  57. ISOTONIC SODIUM CHLORIDE SOLUTION [Concomitant]
     Active Substance: SODIUM CHLORIDE
     Indication: Product used for unknown indication
     Route: 065
     Dates: start: 20220501, end: 20220502
  58. ISOTONIC SODIUM CHLORIDE SOLUTION [Concomitant]
     Active Substance: SODIUM CHLORIDE
     Route: 065
     Dates: start: 20220503, end: 20220503
  59. ISOTONIC SODIUM CHLORIDE SOLUTION [Concomitant]
     Active Substance: SODIUM CHLORIDE
     Route: 065
     Dates: start: 20220921, end: 20220926
  60. ACETAMINOPHEN [Concomitant]
     Active Substance: ACETAMINOPHEN
     Indication: Pain
     Route: 048
     Dates: start: 20220501, end: 20220501
  61. ACETAMINOPHEN [Concomitant]
     Active Substance: ACETAMINOPHEN
     Indication: Pyrexia
     Route: 048
     Dates: start: 20220502, end: 20220502
  62. ACETAMINOPHEN [Concomitant]
     Active Substance: ACETAMINOPHEN
     Route: 048
     Dates: start: 20220503, end: 20220503
  63. ACETAMINOPHEN [Concomitant]
     Active Substance: ACETAMINOPHEN
     Route: 048
     Dates: start: 20220504, end: 20220504
  64. ACETAMINOPHEN [Concomitant]
     Active Substance: ACETAMINOPHEN
     Route: 048
     Dates: start: 20220505, end: 20220505
  65. ACETAMINOPHEN [Concomitant]
     Active Substance: ACETAMINOPHEN
     Route: 048
     Dates: start: 20220506, end: 20220506
  66. ACETAMINOPHEN [Concomitant]
     Active Substance: ACETAMINOPHEN
     Route: 048
     Dates: start: 20220507, end: 20220507
  67. ACETAMINOPHEN [Concomitant]
     Active Substance: ACETAMINOPHEN
     Route: 048
     Dates: start: 20220508, end: 20220509
  68. ACETAMINOPHEN [Concomitant]
     Active Substance: ACETAMINOPHEN
     Route: 048
     Dates: start: 20220510, end: 20220512
  69. ACETAMINOPHEN [Concomitant]
     Active Substance: ACETAMINOPHEN
     Route: 048
     Dates: start: 20220608, end: 20220608
  70. ACETAMINOPHEN [Concomitant]
     Active Substance: ACETAMINOPHEN
     Route: 048
     Dates: start: 20220609, end: 20220609
  71. ACETAMINOPHEN [Concomitant]
     Active Substance: ACETAMINOPHEN
     Route: 048
     Dates: start: 20220610, end: 20220610
  72. ACETAMINOPHEN [Concomitant]
     Active Substance: ACETAMINOPHEN
     Route: 048
     Dates: start: 20220613, end: 20220613
  73. ACETAMINOPHEN [Concomitant]
     Active Substance: ACETAMINOPHEN
     Route: 048
     Dates: start: 20220615, end: 20220615
  74. ACETAMINOPHEN [Concomitant]
     Active Substance: ACETAMINOPHEN
     Route: 048
     Dates: start: 20220616, end: 20220616
  75. ACETAMINOPHEN [Concomitant]
     Active Substance: ACETAMINOPHEN
     Route: 048
     Dates: start: 20220716, end: 20220717
  76. ACETAMINOPHEN [Concomitant]
     Active Substance: ACETAMINOPHEN
     Route: 048
     Dates: start: 20220718, end: 20220718
  77. ACETAMINOPHEN [Concomitant]
     Active Substance: ACETAMINOPHEN
     Route: 048
     Dates: start: 20220719, end: 20220719
  78. ACETAMINOPHEN [Concomitant]
     Active Substance: ACETAMINOPHEN
     Route: 048
     Dates: start: 20220801, end: 20220802
  79. ACETAMINOPHEN [Concomitant]
     Active Substance: ACETAMINOPHEN
     Route: 048
     Dates: start: 20220804, end: 20220804
  80. ACETAMINOPHEN [Concomitant]
     Active Substance: ACETAMINOPHEN
     Route: 048
     Dates: start: 20220806, end: 20220806
  81. ACETAMINOPHEN [Concomitant]
     Active Substance: ACETAMINOPHEN
     Route: 048
     Dates: start: 20220807, end: 20220807
  82. ACETAMINOPHEN [Concomitant]
     Active Substance: ACETAMINOPHEN
     Route: 048
     Dates: start: 20220808, end: 20220809
  83. ACETAMINOPHEN [Concomitant]
     Active Substance: ACETAMINOPHEN
     Route: 048
     Dates: start: 20220901, end: 20220901
  84. ACETAMINOPHEN [Concomitant]
     Active Substance: ACETAMINOPHEN
     Route: 048
     Dates: start: 20220908, end: 20220908
  85. ACETAMINOPHEN [Concomitant]
     Active Substance: ACETAMINOPHEN
     Route: 048
     Dates: start: 20220913, end: 20220913
  86. LASIX [Concomitant]
     Active Substance: FUROSEMIDE
     Indication: Product used for unknown indication
     Route: 065
     Dates: start: 20220501, end: 20220507
  87. LASIX [Concomitant]
     Active Substance: FUROSEMIDE
     Route: 065
     Dates: start: 20220508, end: 20220508
  88. LASIX [Concomitant]
     Active Substance: FUROSEMIDE
     Route: 065
     Dates: start: 20220509, end: 20220517
  89. LASIX [Concomitant]
     Active Substance: FUROSEMIDE
     Route: 065
     Dates: start: 20220625, end: 20220705
  90. LASIX [Concomitant]
     Active Substance: FUROSEMIDE
     Route: 065
     Dates: start: 20220720, end: 20220829
  91. LASIX [Concomitant]
     Active Substance: FUROSEMIDE
     Route: 065
     Dates: start: 20220831, end: 20220831
  92. SODIUM CHLORIDE [Concomitant]
     Active Substance: SODIUM CHLORIDE
     Indication: Product used for unknown indication
     Route: 065
     Dates: start: 20220501, end: 20220501
  93. SODIUM CHLORIDE [Concomitant]
     Active Substance: SODIUM CHLORIDE
     Route: 065
     Dates: start: 20220502, end: 20220502
  94. SODIUM CHLORIDE [Concomitant]
     Active Substance: SODIUM CHLORIDE
     Route: 065
     Dates: start: 20220503, end: 20220503
  95. SODIUM CHLORIDE [Concomitant]
     Active Substance: SODIUM CHLORIDE
     Route: 065
     Dates: start: 20220504, end: 20220504
  96. SODIUM CHLORIDE [Concomitant]
     Active Substance: SODIUM CHLORIDE
     Route: 065
     Dates: start: 20220505, end: 20220505
  97. SODIUM CHLORIDE [Concomitant]
     Active Substance: SODIUM CHLORIDE
     Route: 065
     Dates: start: 20220506, end: 20220508
  98. SODIUM CHLORIDE [Concomitant]
     Active Substance: SODIUM CHLORIDE
     Route: 065
     Dates: start: 20220509, end: 20220509
  99. SODIUM CHLORIDE [Concomitant]
     Active Substance: SODIUM CHLORIDE
     Route: 065
     Dates: start: 20220510, end: 20220510
  100. SODIUM CHLORIDE [Concomitant]
     Active Substance: SODIUM CHLORIDE
     Route: 065
     Dates: start: 20220511, end: 20220511
  101. SODIUM CHLORIDE [Concomitant]
     Active Substance: SODIUM CHLORIDE
     Route: 065
     Dates: start: 20220512, end: 20220512
  102. SODIUM CHLORIDE [Concomitant]
     Active Substance: SODIUM CHLORIDE
     Route: 065
     Dates: start: 20220513, end: 20220515
  103. SODIUM CHLORIDE [Concomitant]
     Active Substance: SODIUM CHLORIDE
     Route: 065
     Dates: start: 20220516, end: 20220517
  104. SODIUM CHLORIDE [Concomitant]
     Active Substance: SODIUM CHLORIDE
     Route: 065
     Dates: start: 20220518, end: 20220518
  105. SODIUM CHLORIDE [Concomitant]
     Active Substance: SODIUM CHLORIDE
     Route: 065
     Dates: start: 20220523, end: 20220523
  106. SODIUM CHLORIDE [Concomitant]
     Active Substance: SODIUM CHLORIDE
     Route: 065
     Dates: start: 20220524, end: 20220524
  107. SODIUM CHLORIDE [Concomitant]
     Active Substance: SODIUM CHLORIDE
     Route: 065
     Dates: start: 20220525, end: 20220525
  108. SODIUM CHLORIDE [Concomitant]
     Active Substance: SODIUM CHLORIDE
     Route: 065
     Dates: start: 20220527, end: 20220527
  109. SODIUM CHLORIDE [Concomitant]
     Active Substance: SODIUM CHLORIDE
     Route: 065
     Dates: start: 20220529, end: 20220529
  110. SODIUM CHLORIDE [Concomitant]
     Active Substance: SODIUM CHLORIDE
     Route: 065
     Dates: start: 20220602, end: 20220602
  111. SODIUM CHLORIDE [Concomitant]
     Active Substance: SODIUM CHLORIDE
     Route: 065
     Dates: start: 20220605, end: 20220605
  112. SODIUM CHLORIDE [Concomitant]
     Active Substance: SODIUM CHLORIDE
     Route: 065
     Dates: start: 20220606, end: 20220606
  113. SODIUM CHLORIDE [Concomitant]
     Active Substance: SODIUM CHLORIDE
     Route: 065
     Dates: start: 20220607, end: 20220607
  114. SODIUM CHLORIDE [Concomitant]
     Active Substance: SODIUM CHLORIDE
     Route: 065
     Dates: start: 20220608, end: 20220609
  115. SODIUM CHLORIDE [Concomitant]
     Active Substance: SODIUM CHLORIDE
     Route: 065
     Dates: start: 20220610, end: 20220610
  116. SODIUM CHLORIDE [Concomitant]
     Active Substance: SODIUM CHLORIDE
     Route: 065
     Dates: start: 20220611, end: 20220611
  117. SODIUM CHLORIDE [Concomitant]
     Active Substance: SODIUM CHLORIDE
     Route: 065
     Dates: start: 20220612, end: 20220612
  118. SODIUM CHLORIDE [Concomitant]
     Active Substance: SODIUM CHLORIDE
     Route: 065
     Dates: start: 20220613, end: 20220613
  119. SODIUM CHLORIDE [Concomitant]
     Active Substance: SODIUM CHLORIDE
     Route: 065
     Dates: start: 20220614, end: 20220614
  120. SODIUM CHLORIDE [Concomitant]
     Active Substance: SODIUM CHLORIDE
     Route: 065
     Dates: start: 20220615, end: 20220615
  121. SODIUM CHLORIDE [Concomitant]
     Active Substance: SODIUM CHLORIDE
     Route: 065
     Dates: start: 20220616, end: 20220616
  122. SODIUM CHLORIDE [Concomitant]
     Active Substance: SODIUM CHLORIDE
     Route: 065
     Dates: start: 20220617, end: 20220617
  123. SODIUM CHLORIDE [Concomitant]
     Active Substance: SODIUM CHLORIDE
     Route: 065
     Dates: start: 20220618, end: 20220618
  124. SODIUM CHLORIDE [Concomitant]
     Active Substance: SODIUM CHLORIDE
     Route: 065
     Dates: start: 20220619, end: 20220619
  125. SODIUM CHLORIDE [Concomitant]
     Active Substance: SODIUM CHLORIDE
     Route: 065
     Dates: start: 20220620, end: 20220620
  126. SODIUM CHLORIDE [Concomitant]
     Active Substance: SODIUM CHLORIDE
     Route: 065
     Dates: start: 20220621, end: 20220622
  127. SODIUM CHLORIDE [Concomitant]
     Active Substance: SODIUM CHLORIDE
     Route: 065
     Dates: start: 20220623, end: 20220623
  128. SODIUM CHLORIDE [Concomitant]
     Active Substance: SODIUM CHLORIDE
     Route: 065
     Dates: start: 20220624, end: 20220624
  129. SODIUM CHLORIDE [Concomitant]
     Active Substance: SODIUM CHLORIDE
     Route: 065
     Dates: start: 20220625, end: 20220625
  130. SODIUM CHLORIDE [Concomitant]
     Active Substance: SODIUM CHLORIDE
     Route: 065
     Dates: start: 20220626, end: 20220626
  131. SODIUM CHLORIDE [Concomitant]
     Active Substance: SODIUM CHLORIDE
     Route: 065
     Dates: start: 20220627, end: 20220627
  132. SODIUM CHLORIDE [Concomitant]
     Active Substance: SODIUM CHLORIDE
     Route: 065
     Dates: start: 20220628, end: 20220628
  133. SODIUM CHLORIDE [Concomitant]
     Active Substance: SODIUM CHLORIDE
     Route: 065
     Dates: start: 20220629, end: 20220629
  134. SODIUM CHLORIDE [Concomitant]
     Active Substance: SODIUM CHLORIDE
     Route: 065
     Dates: start: 20220630, end: 20220630
  135. SODIUM CHLORIDE [Concomitant]
     Active Substance: SODIUM CHLORIDE
     Route: 065
     Dates: start: 20220701, end: 20220701
  136. SODIUM CHLORIDE [Concomitant]
     Active Substance: SODIUM CHLORIDE
     Route: 065
     Dates: start: 20220702, end: 20220702
  137. SODIUM CHLORIDE [Concomitant]
     Active Substance: SODIUM CHLORIDE
     Route: 065
     Dates: start: 20220703, end: 20220703
  138. SODIUM CHLORIDE [Concomitant]
     Active Substance: SODIUM CHLORIDE
     Route: 065
     Dates: start: 20220705, end: 20220707
  139. SODIUM CHLORIDE [Concomitant]
     Active Substance: SODIUM CHLORIDE
     Route: 065
     Dates: start: 20220708, end: 20220708
  140. SODIUM CHLORIDE [Concomitant]
     Active Substance: SODIUM CHLORIDE
     Route: 065
     Dates: start: 20220709, end: 20220709
  141. SODIUM CHLORIDE [Concomitant]
     Active Substance: SODIUM CHLORIDE
     Route: 065
     Dates: start: 20220624, end: 20220713
  142. PRAVASTATIN SODIUM [Concomitant]
     Active Substance: PRAVASTATIN SODIUM
     Indication: Product used for unknown indication
     Dosage: 10 MG, ONCE DAILY (AFTER DINNER)
     Route: 048
     Dates: start: 20220501, end: 20220517
  143. HUMAN RED BLOOD CELL [Concomitant]
     Active Substance: HUMAN RED BLOOD CELL
     Indication: Product used for unknown indication
     Dosage: 1 BAG, ONCE DAILY
     Route: 065
     Dates: start: 20220501, end: 20220501
  144. HUMAN RED BLOOD CELL [Concomitant]
     Active Substance: HUMAN RED BLOOD CELL
     Dosage: 1 BAG, ONCE DAILY
     Route: 065
     Dates: start: 20220503, end: 20220503
  145. HUMAN RED BLOOD CELL [Concomitant]
     Active Substance: HUMAN RED BLOOD CELL
     Dosage: 1 BAG, ONCE DAILY
     Route: 065
     Dates: start: 20220506, end: 20220506
  146. HUMAN RED BLOOD CELL [Concomitant]
     Active Substance: HUMAN RED BLOOD CELL
     Dosage: 1 BAG, ONCE DAILY
     Route: 065
     Dates: start: 20220512, end: 20220512
  147. HUMAN RED BLOOD CELL [Concomitant]
     Active Substance: HUMAN RED BLOOD CELL
     Dosage: 1 BAG, ONCE DAILY
     Route: 065
     Dates: start: 20220518, end: 20220518
  148. HUMAN RED BLOOD CELL [Concomitant]
     Active Substance: HUMAN RED BLOOD CELL
     Dosage: 1 BAG, ONCE DAILY
     Route: 065
     Dates: start: 20220524, end: 20220524
  149. HUMAN RED BLOOD CELL [Concomitant]
     Active Substance: HUMAN RED BLOOD CELL
     Dosage: 1 BAG, ONCE DAILY
     Route: 065
     Dates: start: 20220529, end: 20220529
  150. HUMAN RED BLOOD CELL [Concomitant]
     Active Substance: HUMAN RED BLOOD CELL
     Dosage: 1 BAG, ONCE DAILY
     Route: 065
     Dates: start: 20220608, end: 20220608
  151. HUMAN RED BLOOD CELL [Concomitant]
     Active Substance: HUMAN RED BLOOD CELL
     Dosage: 1 BAG, ONCE DAILY
     Route: 065
     Dates: start: 20220616, end: 20220616
  152. HUMAN RED BLOOD CELL [Concomitant]
     Active Substance: HUMAN RED BLOOD CELL
     Dosage: 1 BAG, ONCE DAILY
     Route: 065
     Dates: start: 20220621, end: 20220621
  153. HUMAN RED BLOOD CELL [Concomitant]
     Active Substance: HUMAN RED BLOOD CELL
     Dosage: 1 BAG, ONCE DAILY
     Route: 065
     Dates: start: 20220625, end: 20220625
  154. HUMAN RED BLOOD CELL [Concomitant]
     Active Substance: HUMAN RED BLOOD CELL
     Dosage: 1 BAG, ONCE DAILY
     Route: 065
     Dates: start: 20220701, end: 20220701
  155. HUMAN RED BLOOD CELL [Concomitant]
     Active Substance: HUMAN RED BLOOD CELL
     Dosage: 1 BAG, ONCE DAILY
     Route: 065
     Dates: start: 20220709, end: 20220709
  156. HUMAN RED BLOOD CELL [Concomitant]
     Active Substance: HUMAN RED BLOOD CELL
     Dosage: 1 BAG, ONCE DAILY
     Route: 065
     Dates: start: 20220713, end: 20220713
  157. HUMAN RED BLOOD CELL [Concomitant]
     Active Substance: HUMAN RED BLOOD CELL
     Dosage: 1 BAG, ONCE DAILY
     Route: 065
     Dates: start: 20220721, end: 20220721
  158. HUMAN RED BLOOD CELL [Concomitant]
     Active Substance: HUMAN RED BLOOD CELL
     Dosage: 1 BAG, ONCE DAILY
     Route: 065
     Dates: start: 20220727, end: 20220727
  159. HUMAN RED BLOOD CELL [Concomitant]
     Active Substance: HUMAN RED BLOOD CELL
     Dosage: 1 BAG, ONCE DAILY
     Route: 065
     Dates: start: 20220801, end: 20220801
  160. HUMAN RED BLOOD CELL [Concomitant]
     Active Substance: HUMAN RED BLOOD CELL
     Dosage: 1 BAG, ONCE DAILY
     Route: 065
     Dates: start: 20220807, end: 20220807
  161. HUMAN RED BLOOD CELL [Concomitant]
     Active Substance: HUMAN RED BLOOD CELL
     Dosage: 1 BAG, ONCE DAILY
     Route: 065
     Dates: start: 20220810, end: 20220810
  162. HUMAN RED BLOOD CELL [Concomitant]
     Active Substance: HUMAN RED BLOOD CELL
     Dosage: 1 BAG, ONCE DAILY
     Route: 065
     Dates: start: 20220816, end: 20220816
  163. HUMAN RED BLOOD CELL [Concomitant]
     Active Substance: HUMAN RED BLOOD CELL
     Dosage: 1 BAG, ONCE DAILY
     Route: 065
     Dates: start: 20220823, end: 20220823
  164. HUMAN RED BLOOD CELL [Concomitant]
     Active Substance: HUMAN RED BLOOD CELL
     Dosage: 1 BAG, ONCE DAILY
     Route: 065
     Dates: start: 20220827, end: 20220827
  165. HUMAN RED BLOOD CELL [Concomitant]
     Active Substance: HUMAN RED BLOOD CELL
     Dosage: 1 BAG, ONCE DAILY
     Route: 065
     Dates: start: 20220902, end: 20220903
  166. HUMAN RED BLOOD CELL [Concomitant]
     Active Substance: HUMAN RED BLOOD CELL
     Dosage: 1 BAG, ONCE DAILY
     Route: 065
     Dates: start: 20220910, end: 20220910
  167. HUMAN RED BLOOD CELL [Concomitant]
     Active Substance: HUMAN RED BLOOD CELL
     Dosage: 2 BAGS, ONCE DAILY
     Route: 065
     Dates: start: 20220917, end: 20220917
  168. IRRADIATED PLATELET CONCENTRATE, LEUKOCYTES R [Concomitant]
     Indication: Product used for unknown indication
     Dosage: 10 UNITS ABOUT 200ML, ONCE DAILY
     Route: 065
     Dates: start: 20220502, end: 20220502
  169. IRRADIATED PLATELET CONCENTRATE, LEUKOCYTES R [Concomitant]
     Dosage: 10 UNITS ABOUT 200ML, EVERY OTHER DAY
     Route: 065
     Dates: start: 20220505, end: 20220511
  170. IRRADIATED PLATELET CONCENTRATE, LEUKOCYTES R [Concomitant]
     Dosage: 10 UNITS ABOUT 200ML, ONCE DAILY
     Route: 065
     Dates: start: 20220515, end: 20220515
  171. IRRADIATED PLATELET CONCENTRATE, LEUKOCYTES R [Concomitant]
     Dosage: 10 UNITS ABOUT 200ML, ONCE DAILY
     Route: 065
     Dates: start: 20220518, end: 20220518
  172. IRRADIATED PLATELET CONCENTRATE, LEUKOCYTES R [Concomitant]
     Dosage: 10 UNITS ABOUT 200ML, EVERY OTHER DAY
     Route: 065
     Dates: start: 20220523, end: 20220529
  173. IRRADIATED PLATELET CONCENTRATE, LEUKOCYTES R [Concomitant]
     Dosage: 10 UNITS ABOUT 200ML, ONCE DAILY
     Route: 065
     Dates: start: 20220602, end: 20220602
  174. IRRADIATED PLATELET CONCENTRATE, LEUKOCYTES R [Concomitant]
     Dosage: 10 UNITS ABOUT 200ML, ONCE DAILY
     Route: 065
     Dates: start: 20220605, end: 20220605
  175. IRRADIATED PLATELET CONCENTRATE, LEUKOCYTES R [Concomitant]
     Dosage: 10 UNITS ABOUT 200ML, ONCE DAILY
     Route: 065
     Dates: start: 20220608, end: 20220608
  176. IRRADIATED PLATELET CONCENTRATE, LEUKOCYTES R [Concomitant]
     Dosage: 10 UNITS ABOUT 200ML, EVERY OTHER DAY
     Route: 065
     Dates: start: 20220611, end: 20220613
  177. IRRADIATED PLATELET CONCENTRATE, LEUKOCYTES R [Concomitant]
     Dosage: 10 UNITS ABOUT 200ML, EVERY OTHER DAY
     Route: 065
     Dates: start: 20220617, end: 20220623
  178. IRRADIATED PLATELET CONCENTRATE, LEUKOCYTES R [Concomitant]
     Dosage: 10 UNITS ABOUT 200ML, ONCE DAILY
     Route: 065
     Dates: start: 20220626, end: 20220626
  179. IRRADIATED PLATELET CONCENTRATE, LEUKOCYTES R [Concomitant]
     Dosage: 10 UNITS ABOUT 200ML, EVERY OTHER DAY
     Route: 065
     Dates: start: 20220701, end: 20220703
  180. IRRADIATED PLATELET CONCENTRATE, LEUKOCYTES R [Concomitant]
     Dosage: 10 UNITS ABOUT 200ML, ONCE DAILY
     Route: 065
     Dates: start: 20220707, end: 20220707
  181. IRRADIATED PLATELET CONCENTRATE, LEUKOCYTES R [Concomitant]
     Dosage: 10 UNITS ABOUT 200ML, EVERY OTHER DAY
     Route: 065
     Dates: start: 20220710, end: 20220712
  182. IRRADIATED PLATELET CONCENTRATE, LEUKOCYTES R [Concomitant]
     Dosage: 10 UNITS ABOUT 200ML, EVERY OTHER DAY
     Route: 065
     Dates: start: 20220715, end: 20220725
  183. IRRADIATED PLATELET CONCENTRATE, LEUKOCYTES R [Concomitant]
     Dosage: 10 UNITS ABOUT 200ML, ONCE DAILY
     Route: 065
     Dates: start: 20220728, end: 20220728
  184. IRRADIATED PLATELET CONCENTRATE, LEUKOCYTES R [Concomitant]
     Dosage: 20 UNITS ABOUT 250ML, ONCE DAILY
     Route: 065
     Dates: start: 20220730, end: 20220730
  185. IRRADIATED PLATELET CONCENTRATE, LEUKOCYTES R [Concomitant]
     Dosage: 10 UNITS ABOUT 200ML, EVERY OTHER DAY
     Route: 065
     Dates: start: 20220801, end: 20220805
  186. IRRADIATED PLATELET CONCENTRATE, LEUKOCYTES R [Concomitant]
     Dosage: 10 UNITS ABOUT 200ML, ONCE DAILY
     Route: 065
     Dates: start: 20220808, end: 20220808
  187. IRRADIATED PLATELET CONCENTRATE, LEUKOCYTES R [Concomitant]
     Dosage: 10 UNITS ABOUT 200ML, ONCE DAILY
     Route: 065
     Dates: start: 20220811, end: 20220811
  188. IRRADIATED PLATELET CONCENTRATE, LEUKOCYTES R [Concomitant]
     Dosage: 10 UNITS ABOUT 200ML, ONCE DAILY
     Route: 065
     Dates: start: 20220814, end: 20220814
  189. IRRADIATED PLATELET CONCENTRATE, LEUKOCYTES R [Concomitant]
     Dosage: 10 UNITS ABOUT 200ML, EVERY OTHER DAY
     Route: 065
     Dates: start: 20220817, end: 20220823
  190. IRRADIATED PLATELET CONCENTRATE, LEUKOCYTES R [Concomitant]
     Dosage: 10 UNITS ABOUT 200ML, EVERY OTHER DAY
     Route: 065
     Dates: start: 20220826, end: 20220828
  191. IRRADIATED PLATELET CONCENTRATE, LEUKOCYTES R [Concomitant]
     Dosage: 20 UNITS ABOUT 250ML, ONCE DAILY
     Route: 065
     Dates: start: 20220812, end: 20220812
  192. IRRADIATED PLATELET CONCENTRATE, LEUKOCYTES R [Concomitant]
     Dosage: 10 UNITS ABOUT 200ML, EVERY OTHER DAY
     Route: 065
     Dates: start: 20220902, end: 20220904
  193. IRRADIATED PLATELET CONCENTRATE, LEUKOCYTES R [Concomitant]
     Dosage: 10 UNITS ABOUT 200ML, EVERY OTHER DAY
     Route: 065
     Dates: start: 20220914, end: 20220916
  194. IRRADIATED PLATELET CONCENTRATE, LEUKOCYTES R [Concomitant]
     Dosage: 20 UNITS ABOUT 250ML, ONCE DAILY
     Route: 065
     Dates: start: 20220905, end: 20220905
  195. IRRADIATED PLATELET CONCENTRATE, LEUKOCYTES R [Concomitant]
     Dosage: 20 UNITS ABOUT 250ML, ONCE DAILY
     Route: 065
     Dates: start: 20220910, end: 20220910
  196. IRRADIATED PLATELET CONCENTRATE, LEUKOCYTES R [Concomitant]
     Dosage: 2 BAGS X 10 UNITS ABOUT 200ML, EVERY OTHER DAY
     Route: 065
     Dates: start: 20220918, end: 20220920
  197. DOMPERIDONE [Concomitant]
     Active Substance: DOMPERIDONE
     Indication: Nausea
     Route: 048
     Dates: start: 20220502, end: 20220502
  198. DOMPERIDONE [Concomitant]
     Active Substance: DOMPERIDONE
     Route: 048
     Dates: start: 20220515, end: 20220515
  199. SODIUM CHLORIDE [Concomitant]
     Active Substance: SODIUM CHLORIDE
     Indication: Product used for unknown indication
     Route: 065
     Dates: start: 20220503, end: 20220503
  200. SODIUM CHLORIDE [Concomitant]
     Active Substance: SODIUM CHLORIDE
     Route: 065
     Dates: start: 20220504, end: 20220517
  201. SODIUM CHLORIDE [Concomitant]
     Active Substance: SODIUM CHLORIDE
     Route: 065
     Dates: start: 20220518, end: 20220518
  202. SODIUM CHLORIDE [Concomitant]
     Active Substance: SODIUM CHLORIDE
     Route: 065
     Dates: start: 20220605, end: 20220605
  203. SODIUM CHLORIDE [Concomitant]
     Active Substance: SODIUM CHLORIDE
     Route: 065
     Dates: start: 20220606, end: 20220613
  204. SODIUM CHLORIDE [Concomitant]
     Active Substance: SODIUM CHLORIDE
     Route: 065
     Dates: start: 20220614, end: 20220627
  205. SODIUM CHLORIDE [Concomitant]
     Active Substance: SODIUM CHLORIDE
     Route: 065
     Dates: start: 20220628, end: 20220628
  206. SODIUM CHLORIDE [Concomitant]
     Active Substance: SODIUM CHLORIDE
     Route: 065
     Dates: start: 20220630, end: 20220705
  207. SODIUM CHLORIDE [Concomitant]
     Active Substance: SODIUM CHLORIDE
     Route: 065
     Dates: start: 20220706, end: 20220713
  208. SODIUM CHLORIDE [Concomitant]
     Active Substance: SODIUM CHLORIDE
     Route: 065
     Dates: start: 20220717, end: 20220717
  209. SODIUM CHLORIDE [Concomitant]
     Active Substance: SODIUM CHLORIDE
     Route: 065
     Dates: start: 20220718, end: 20220728
  210. SODIUM CHLORIDE [Concomitant]
     Active Substance: SODIUM CHLORIDE
     Route: 065
     Dates: start: 20220809, end: 20220809
  211. SODIUM CHLORIDE [Concomitant]
     Active Substance: SODIUM CHLORIDE
     Route: 065
     Dates: start: 20220810, end: 20220822
  212. SODIUM CHLORIDE [Concomitant]
     Active Substance: SODIUM CHLORIDE
     Route: 065
     Dates: start: 20220823, end: 20220823
  213. SODIUM CHLORIDE [Concomitant]
     Active Substance: SODIUM CHLORIDE
     Route: 065
     Dates: start: 20220826, end: 20220826
  214. SODIUM CHLORIDE [Concomitant]
     Active Substance: SODIUM CHLORIDE
     Route: 065
     Dates: start: 20220827, end: 20220829
  215. SODIUM CHLORIDE [Concomitant]
     Active Substance: SODIUM CHLORIDE
     Route: 065
     Dates: start: 20220830, end: 20220830
  216. SODIUM CHLORIDE [Concomitant]
     Active Substance: SODIUM CHLORIDE
     Route: 065
     Dates: start: 20220909, end: 20220910
  217. SODIUM CHLORIDE [Concomitant]
     Active Substance: SODIUM CHLORIDE
     Route: 065
     Dates: start: 20220911, end: 20220916
  218. SODIUM CHLORIDE [Concomitant]
     Active Substance: SODIUM CHLORIDE
     Route: 065
     Dates: start: 20220917, end: 20220917
  219. SODIUM CHLORIDE [Concomitant]
     Active Substance: SODIUM CHLORIDE
     Route: 065
     Dates: start: 20220918, end: 20220920
  220. SODIUM CHLORIDE [Concomitant]
     Active Substance: SODIUM CHLORIDE
     Route: 065
     Dates: start: 20220921, end: 20220922
  221. SODIUM CHLORIDE [Concomitant]
     Active Substance: SODIUM CHLORIDE
     Route: 065
     Dates: start: 20220923, end: 20220929
  222. SODIUM CHLORIDE [Concomitant]
     Active Substance: SODIUM CHLORIDE
     Route: 065
     Dates: start: 20220930, end: 20220930
  223. MEROPENEM [Concomitant]
     Active Substance: MEROPENEM
     Indication: Product used for unknown indication
     Route: 065
     Dates: start: 20220503, end: 20220503
  224. MEROPENEM [Concomitant]
     Active Substance: MEROPENEM
     Route: 065
     Dates: start: 20220504, end: 20220517
  225. MEROPENEM [Concomitant]
     Active Substance: MEROPENEM
     Route: 065
     Dates: start: 20220518, end: 20220518
  226. MEROPENEM [Concomitant]
     Active Substance: MEROPENEM
     Route: 065
     Dates: start: 20220613, end: 20220613
  227. MEROPENEM [Concomitant]
     Active Substance: MEROPENEM
     Route: 065
     Dates: start: 20220614, end: 20220627
  228. MEROPENEM [Concomitant]
     Active Substance: MEROPENEM
     Route: 065
     Dates: start: 20220628, end: 20220628
  229. MEROPENEM [Concomitant]
     Active Substance: MEROPENEM
     Route: 065
     Dates: start: 20220705, end: 20220705
  230. MEROPENEM [Concomitant]
     Active Substance: MEROPENEM
     Route: 065
     Dates: start: 20220706, end: 20220713
  231. MEROPENEM [Concomitant]
     Active Substance: MEROPENEM
     Route: 065
     Dates: start: 20220717, end: 20220717
  232. MEROPENEM [Concomitant]
     Active Substance: MEROPENEM
     Route: 065
     Dates: start: 20220718, end: 20220728
  233. MEROPENEM [Concomitant]
     Active Substance: MEROPENEM
     Route: 065
     Dates: start: 20220809, end: 20220809
  234. MEROPENEM [Concomitant]
     Active Substance: MEROPENEM
     Route: 065
     Dates: start: 20220810, end: 20220822
  235. MEROPENEM [Concomitant]
     Active Substance: MEROPENEM
     Route: 065
     Dates: start: 20220823, end: 20220823
  236. MEROPENEM [Concomitant]
     Active Substance: MEROPENEM
     Route: 065
     Dates: start: 20220826, end: 20220826
  237. MEROPENEM [Concomitant]
     Active Substance: MEROPENEM
     Route: 065
     Dates: start: 20220827, end: 20220829
  238. MEROPENEM [Concomitant]
     Active Substance: MEROPENEM
     Route: 065
     Dates: start: 20220830, end: 20220830
  239. MEROPENEM [Concomitant]
     Active Substance: MEROPENEM
     Route: 065
     Dates: start: 20220909, end: 20220910
  240. MEROPENEM [Concomitant]
     Active Substance: MEROPENEM
     Route: 065
     Dates: start: 20220911, end: 20220916
  241. MEROPENEM [Concomitant]
     Active Substance: MEROPENEM
     Route: 065
     Dates: start: 20220917, end: 20220917
  242. MEROPENEM [Concomitant]
     Active Substance: MEROPENEM
     Route: 065
     Dates: start: 20220918, end: 20220922
  243. MEROPENEM [Concomitant]
     Active Substance: MEROPENEM
     Route: 065
     Dates: start: 20220923, end: 20220923
  244. HUMULIN R [Concomitant]
     Active Substance: INSULIN HUMAN
     Indication: Product used for unknown indication
     Dosage: 8 UNITS, ONCE DAILY
     Route: 065
     Dates: start: 20220504, end: 20220504
  245. HUMULIN R [Concomitant]
     Active Substance: INSULIN HUMAN
     Dosage: 4 UNITS, ONCE DAILY
     Route: 065
     Dates: start: 20220512, end: 20220513
  246. HUMULIN R [Concomitant]
     Active Substance: INSULIN HUMAN
     Dosage: 4 UNITS, ONCE DAILY
     Route: 065
     Dates: start: 20220515, end: 20220517
  247. HUMULIN R [Concomitant]
     Active Substance: INSULIN HUMAN
     Dosage: 4 UNITS, ONCE DAILY
     Route: 065
     Dates: start: 20220521, end: 20220523
  248. HUMULIN R [Concomitant]
     Active Substance: INSULIN HUMAN
     Dosage: 4 UNITS, ONCE DAILY
     Route: 065
     Dates: start: 20220525, end: 20220525
  249. HUMULIN R [Concomitant]
     Active Substance: INSULIN HUMAN
     Dosage: 4 UNITS, ONCE DAILY
     Route: 065
     Dates: start: 20220530, end: 20220530
  250. HUMULIN R [Concomitant]
     Active Substance: INSULIN HUMAN
     Dosage: 6 UNITS, ONCE DAILY
     Route: 065
     Dates: start: 20220531, end: 20220531
  251. HUMULIN R [Concomitant]
     Active Substance: INSULIN HUMAN
     Dosage: 4 UNITS, ONCE DAILY
     Route: 065
     Dates: start: 20220601, end: 20220601
  252. HUMULIN R [Concomitant]
     Active Substance: INSULIN HUMAN
     Dosage: 4 UNITS, ONCE DAILY
     Route: 065
     Dates: start: 20220606, end: 20220607
  253. HUMULIN R [Concomitant]
     Active Substance: INSULIN HUMAN
     Dosage: 4 UNITS, ONCE DAILY
     Route: 065
     Dates: start: 20220614, end: 20220614
  254. HUMULIN R [Concomitant]
     Active Substance: INSULIN HUMAN
     Dosage: 4 UNITS, ONCE DAILY
     Route: 065
     Dates: start: 20220617, end: 20220619
  255. HUMULIN R [Concomitant]
     Active Substance: INSULIN HUMAN
     Dosage: 6 UNITS, EVERY OTHER DAY
     Route: 065
     Dates: start: 20220620, end: 20220622
  256. HUMULIN R [Concomitant]
     Active Substance: INSULIN HUMAN
     Dosage: 4 UNITS, ONCE DAILY
     Route: 065
     Dates: start: 20220624, end: 20220624
  257. HUMULIN R [Concomitant]
     Active Substance: INSULIN HUMAN
     Dosage: 18 UNITS, ONCE DAILY
     Route: 065
     Dates: start: 20220625, end: 20220625
  258. HUMULIN R [Concomitant]
     Active Substance: INSULIN HUMAN
     Dosage: 12 UNITS, ONCE DAILY
     Route: 065
     Dates: start: 20220626, end: 20220626
  259. HUMULIN R [Concomitant]
     Active Substance: INSULIN HUMAN
     Dosage: 8 UNITS, ONCE DAILY
     Route: 065
     Dates: start: 20220627, end: 20220627
  260. SPIRONOLACTONE [Concomitant]
     Active Substance: SPIRONOLACTONE
     Indication: Product used for unknown indication
     Dosage: 25 MG, ONCE DAILY (AFTER BREAKFAST)
     Route: 048
     Dates: start: 20220508, end: 20220511
  261. SPIRONOLACTONE [Concomitant]
     Active Substance: SPIRONOLACTONE
     Dosage: 50 MG, ONCE DAILY (AFTER BREAKFAST)
     Route: 048
     Dates: start: 20220512, end: 20220601
  262. SPIRONOLACTONE [Concomitant]
     Active Substance: SPIRONOLACTONE
     Dosage: 25 MG, ONCE DAILY (AFTER BREAKFAST)
     Route: 048
     Dates: start: 20220602, end: 20220831
  263. TRICHLORMETHIAZIDE [Concomitant]
     Active Substance: TRICHLORMETHIAZIDE
     Indication: Product used for unknown indication
     Dosage: 2 MG, ONCE DAILY (AFTER BREAKFAST)
     Route: 048
     Dates: start: 20220512, end: 20220530
  264. LEVOFLOXACIN HEMIHYDRATE [Concomitant]
     Active Substance: LEVOFLOXACIN
     Indication: Product used for unknown indication
     Dosage: 500 MG, ONCE DAILY (AFTER BREAKFAST)
     Route: 048
     Dates: start: 20220518, end: 20220518
  265. LEVOFLOXACIN HEMIHYDRATE [Concomitant]
     Active Substance: LEVOFLOXACIN
     Dosage: 1000 MG, ONCE DAILY (AFTER BREAKFAST)
     Route: 048
     Dates: start: 20220519, end: 20220525
  266. LEVOFLOXACIN HEMIHYDRATE [Concomitant]
     Active Substance: LEVOFLOXACIN
     Dosage: 500 MG, ONCE DAILY (AFTER BREAKFAST)
     Route: 048
     Dates: start: 20220526, end: 20220602
  267. LEVOFLOXACIN HEMIHYDRATE [Concomitant]
     Active Substance: LEVOFLOXACIN
     Dosage: 250 MG, ONCE DAILY (AFTER BREAKFAST)
     Route: 048
     Dates: start: 20220603, end: 20220605
  268. LEVOFLOXACIN HEMIHYDRATE [Concomitant]
     Active Substance: LEVOFLOXACIN
     Dosage: 500 MG, ONCE DAILY (AFTER BREAKFAST)
     Route: 048
     Dates: start: 20220729, end: 20220729
  269. LEVOFLOXACIN HEMIHYDRATE [Concomitant]
     Active Substance: LEVOFLOXACIN
     Dosage: 500 MG, ONCE DAILY (AFTER BREAKFAST)
     Route: 048
     Dates: start: 20220804, end: 20220810
  270. LEVOFLOXACIN HEMIHYDRATE [Concomitant]
     Active Substance: LEVOFLOXACIN
     Dosage: 500 MG, ONCE DAILY (AFTER BREAKFAST)
     Route: 048
     Dates: start: 20220901, end: 20220909
  271. FEBUXOSTAT [Concomitant]
     Active Substance: FEBUXOSTAT
     Indication: Product used for unknown indication
     Dosage: 60 MG, ONCE DAILY (AFTER BREAKFAST)
     Route: 048
     Dates: start: 20220524, end: 20220530
  272. FEBUXOSTAT [Concomitant]
     Active Substance: FEBUXOSTAT
     Dosage: 20 MG, ONCE DAILY (AFTER BREAKFAST)
     Route: 048
     Dates: start: 20220531, end: 20220824
  273. DEXTROSE [Concomitant]
     Active Substance: DEXTROSE\DEXTROSE MONOHYDRATE
     Indication: Product used for unknown indication
     Dosage: 40 (UNKNOWN UNIT), ONCE DAILY
     Route: 065
     Dates: start: 20220621, end: 20220621
  274. DEXTROSE [Concomitant]
     Active Substance: DEXTROSE\DEXTROSE MONOHYDRATE
     Dosage: 20 (UNKNOWN UNIT), ONCE DAILY
     Route: 065
     Dates: start: 20220907, end: 20220907
  275. DEXTROSE [Concomitant]
     Active Substance: DEXTROSE\DEXTROSE MONOHYDRATE
     Dosage: 40 (UNKNOWN UNIT), ONCE DAILY
     Route: 065
     Dates: start: 20220908, end: 20220909
  276. PREDNISOLONE [Concomitant]
     Active Substance: PREDNISOLONE
     Indication: Acute febrile neutrophilic dermatosis
     Route: 048
     Dates: start: 20220624
  277. PREDNISOLONE [Concomitant]
     Active Substance: PREDNISOLONE
     Route: 048
     Dates: start: 20220708
  278. SODIUM CHLORIDE [Concomitant]
     Active Substance: SODIUM CHLORIDE
     Indication: Product used for unknown indication
     Route: 065
     Dates: start: 20220710, end: 20220710
  279. SODIUM CHLORIDE [Concomitant]
     Active Substance: SODIUM CHLORIDE
     Route: 065
     Dates: start: 20220711, end: 20220711
  280. SODIUM CHLORIDE [Concomitant]
     Active Substance: SODIUM CHLORIDE
     Route: 065
     Dates: start: 20220712, end: 20220712
  281. SODIUM CHLORIDE [Concomitant]
     Active Substance: SODIUM CHLORIDE
     Route: 065
     Dates: start: 20220713, end: 20220713
  282. SODIUM CHLORIDE [Concomitant]
     Active Substance: SODIUM CHLORIDE
     Route: 065
     Dates: start: 20220715, end: 20220715
  283. SODIUM CHLORIDE [Concomitant]
     Active Substance: SODIUM CHLORIDE
     Route: 065
     Dates: start: 20220717, end: 20220717
  284. SODIUM CHLORIDE [Concomitant]
     Active Substance: SODIUM CHLORIDE
     Route: 065
     Dates: start: 20220718, end: 20220719
  285. SODIUM CHLORIDE [Concomitant]
     Active Substance: SODIUM CHLORIDE
     Route: 065
     Dates: start: 20220720, end: 20220720
  286. SODIUM CHLORIDE [Concomitant]
     Active Substance: SODIUM CHLORIDE
     Route: 065
     Dates: start: 20220721, end: 20220722
  287. SODIUM CHLORIDE [Concomitant]
     Active Substance: SODIUM CHLORIDE
     Route: 065
     Dates: start: 20220723, end: 20220723
  288. SODIUM CHLORIDE [Concomitant]
     Active Substance: SODIUM CHLORIDE
     Route: 065
     Dates: start: 20220724, end: 20220724
  289. SODIUM CHLORIDE [Concomitant]
     Active Substance: SODIUM CHLORIDE
     Route: 065
     Dates: start: 20220725, end: 20220725
  290. SODIUM CHLORIDE [Concomitant]
     Active Substance: SODIUM CHLORIDE
     Route: 065
     Dates: start: 20220726, end: 20220726
  291. SODIUM CHLORIDE [Concomitant]
     Active Substance: SODIUM CHLORIDE
     Route: 065
     Dates: start: 20220727, end: 20220728
  292. SODIUM CHLORIDE [Concomitant]
     Active Substance: SODIUM CHLORIDE
     Route: 065
     Dates: start: 20220729, end: 20220729
  293. SODIUM CHLORIDE [Concomitant]
     Active Substance: SODIUM CHLORIDE
     Route: 065
     Dates: start: 20220730, end: 20220801
  294. SODIUM CHLORIDE [Concomitant]
     Active Substance: SODIUM CHLORIDE
     Route: 065
     Dates: start: 20220802, end: 20220802
  295. SODIUM CHLORIDE [Concomitant]
     Active Substance: SODIUM CHLORIDE
     Route: 065
     Dates: start: 20220803, end: 20220803
  296. SODIUM CHLORIDE [Concomitant]
     Active Substance: SODIUM CHLORIDE
     Route: 065
     Dates: start: 20220804, end: 20220804
  297. SODIUM CHLORIDE [Concomitant]
     Active Substance: SODIUM CHLORIDE
     Route: 065
     Dates: start: 20220805, end: 20220805
  298. SODIUM CHLORIDE [Concomitant]
     Active Substance: SODIUM CHLORIDE
     Route: 065
     Dates: start: 20220806, end: 20220806
  299. SODIUM CHLORIDE [Concomitant]
     Active Substance: SODIUM CHLORIDE
     Route: 065
     Dates: start: 20220807, end: 20220807
  300. SODIUM CHLORIDE [Concomitant]
     Active Substance: SODIUM CHLORIDE
     Route: 065
     Dates: start: 20220808, end: 20220808
  301. SODIUM CHLORIDE [Concomitant]
     Active Substance: SODIUM CHLORIDE
     Route: 065
     Dates: start: 20220809, end: 20220809
  302. SODIUM CHLORIDE [Concomitant]
     Active Substance: SODIUM CHLORIDE
     Route: 065
     Dates: start: 20220810, end: 20220810
  303. SODIUM CHLORIDE [Concomitant]
     Active Substance: SODIUM CHLORIDE
     Route: 065
     Dates: start: 20220811, end: 20220811
  304. SODIUM CHLORIDE [Concomitant]
     Active Substance: SODIUM CHLORIDE
     Route: 065
     Dates: start: 20220812, end: 20220813
  305. SODIUM CHLORIDE [Concomitant]
     Active Substance: SODIUM CHLORIDE
     Route: 065
     Dates: start: 20220815, end: 20220815
  306. SODIUM CHLORIDE [Concomitant]
     Active Substance: SODIUM CHLORIDE
     Route: 065
     Dates: start: 20220816, end: 20220816
  307. SODIUM CHLORIDE [Concomitant]
     Active Substance: SODIUM CHLORIDE
     Route: 065
     Dates: start: 20220817, end: 20220817
  308. SODIUM CHLORIDE [Concomitant]
     Active Substance: SODIUM CHLORIDE
     Route: 065
     Dates: start: 20220818, end: 20220818
  309. SODIUM CHLORIDE [Concomitant]
     Active Substance: SODIUM CHLORIDE
     Route: 065
     Dates: start: 20220819, end: 20220819
  310. SODIUM CHLORIDE [Concomitant]
     Active Substance: SODIUM CHLORIDE
     Route: 065
     Dates: start: 20220820, end: 20220820
  311. SODIUM CHLORIDE [Concomitant]
     Active Substance: SODIUM CHLORIDE
     Route: 065
     Dates: start: 20220821, end: 20220821
  312. SODIUM CHLORIDE [Concomitant]
     Active Substance: SODIUM CHLORIDE
     Route: 065
     Dates: start: 20220822, end: 20220822
  313. SODIUM CHLORIDE [Concomitant]
     Active Substance: SODIUM CHLORIDE
     Route: 065
     Dates: start: 20220823, end: 20220823
  314. SODIUM CHLORIDE [Concomitant]
     Active Substance: SODIUM CHLORIDE
     Route: 065
     Dates: start: 20220824, end: 20220824
  315. SODIUM CHLORIDE [Concomitant]
     Active Substance: SODIUM CHLORIDE
     Route: 065
     Dates: start: 20220825, end: 20220826
  316. SODIUM CHLORIDE [Concomitant]
     Active Substance: SODIUM CHLORIDE
     Route: 065
     Dates: start: 20220827, end: 20220827
  317. SODIUM CHLORIDE [Concomitant]
     Active Substance: SODIUM CHLORIDE
     Route: 065
     Dates: start: 20220828, end: 20220829
  318. SODIUM CHLORIDE [Concomitant]
     Active Substance: SODIUM CHLORIDE
     Route: 065
     Dates: start: 20220830, end: 20220830
  319. SODIUM CHLORIDE [Concomitant]
     Active Substance: SODIUM CHLORIDE
     Route: 065
     Dates: start: 20220901, end: 20220901
  320. SODIUM CHLORIDE [Concomitant]
     Active Substance: SODIUM CHLORIDE
     Route: 065
     Dates: start: 20220902, end: 20220902
  321. SODIUM CHLORIDE [Concomitant]
     Active Substance: SODIUM CHLORIDE
     Route: 065
     Dates: start: 20220903, end: 20220903
  322. SODIUM CHLORIDE [Concomitant]
     Active Substance: SODIUM CHLORIDE
     Route: 065
     Dates: start: 20220904, end: 20220904
  323. SODIUM CHLORIDE [Concomitant]
     Active Substance: SODIUM CHLORIDE
     Route: 065
     Dates: start: 20220905, end: 20220905
  324. SODIUM CHLORIDE [Concomitant]
     Active Substance: SODIUM CHLORIDE
     Route: 065
     Dates: start: 20220906, end: 20220906
  325. SODIUM CHLORIDE [Concomitant]
     Active Substance: SODIUM CHLORIDE
     Route: 065
     Dates: start: 20220909, end: 20220909
  326. SODIUM CHLORIDE [Concomitant]
     Active Substance: SODIUM CHLORIDE
     Route: 065
     Dates: start: 20220910, end: 20220910
  327. SODIUM CHLORIDE [Concomitant]
     Active Substance: SODIUM CHLORIDE
     Route: 065
     Dates: start: 20220911, end: 20220911
  328. PREDONINE [Concomitant]
     Active Substance: PREDNISOLONE
     Indication: Product used for unknown indication
     Dosage: 20 MG, ONCE DAILY (AFTER BREAKFAST)
     Route: 048
     Dates: start: 20220714, end: 20220930
  329. SULFAMETHOXAZOLE\TRIMETHOPRIM [Concomitant]
     Active Substance: SULFAMETHOXAZOLE\TRIMETHOPRIM
     Indication: Product used for unknown indication
     Dosage: 1 DF, ONCE DAILY (AFTER BREAKFAST)
     Route: 048
     Dates: start: 20220714, end: 20220930
  330. ALBUMINAR [Concomitant]
     Active Substance: ALBUMIN HUMAN
     Indication: Product used for unknown indication
     Dosage: 2 BOTTLES, ONCE DAILY
     Route: 065
     Dates: start: 20220721, end: 20220722
  331. ALBUMINAR [Concomitant]
     Active Substance: ALBUMIN HUMAN
     Dosage: 2 BOTTLES, ONCE DAILY
     Route: 065
     Dates: start: 20220815, end: 20220816
  332. ALBUMINAR [Concomitant]
     Active Substance: ALBUMIN HUMAN
     Dosage: 2 BOTTLES, ONCE DAILY
     Route: 065
     Dates: start: 20220902, end: 20220902
  333. HEPARIN SODIUM [Concomitant]
     Active Substance: HEPARIN SODIUM
     Indication: Product used for unknown indication
     Route: 065
     Dates: start: 20220723, end: 20220823
  334. HEPARIN SODIUM [Concomitant]
     Active Substance: HEPARIN SODIUM
     Route: 065
     Dates: start: 20220824, end: 20220829
  335. HEPARIN SODIUM [Concomitant]
     Active Substance: HEPARIN SODIUM
     Route: 065
     Dates: start: 20220830, end: 20220830
  336. HEPARIN SODIUM [Concomitant]
     Active Substance: HEPARIN SODIUM
     Route: 065
     Dates: start: 20220831, end: 20220831
  337. EDOXABAN TOSYLATE [Concomitant]
     Active Substance: EDOXABAN TOSYLATE
     Indication: Product used for unknown indication
     Dosage: 30 MG, ONCE DAILY (AFTER BREAKFAST)
     Route: 048
     Dates: start: 20220727, end: 20220810
  338. EDOXABAN TOSYLATE [Concomitant]
     Active Substance: EDOXABAN TOSYLATE
     Dosage: 30 MG, ONCE DAILY (AFTER BREAKFAST)
     Route: 048
     Dates: start: 20220813, end: 20220906
  339. SILVER SULFADIAZINE [Concomitant]
     Active Substance: SILVER SULFADIAZINE
     Indication: Product used for unknown indication
     Route: 065
     Dates: start: 20220802, end: 20220802
  340. WHITE PETROLATUM [Concomitant]
     Active Substance: PETROLATUM
     Indication: Product used for unknown indication
     Dosage: 30 G, AT ANY TIME
     Route: 065
     Dates: start: 20220812, end: 20220812
  341. SILODOSIN [Concomitant]
     Active Substance: SILODOSIN
     Indication: Product used for unknown indication
     Dosage: 8 MG, TWICE DAILY (AFTER BREAKFAST AND DINNER)
     Route: 048
     Dates: start: 20220816, end: 20220906
  342. LINEZOLID [Concomitant]
     Active Substance: LINEZOLID
     Indication: Product used for unknown indication
     Route: 048
     Dates: start: 20220830, end: 20220902
  343. ISOTONIC SODIUM CHLORIDE SOLUTION [Concomitant]
     Active Substance: SODIUM CHLORIDE
     Indication: Product used for unknown indication
     Route: 065
     Dates: start: 20220831, end: 20220906
  344. ISOTONIC SODIUM CHLORIDE SOLUTION [Concomitant]
     Active Substance: SODIUM CHLORIDE
     Route: 065
     Dates: start: 20220907, end: 20220910
  345. ISOTONIC SODIUM CHLORIDE SOLUTION [Concomitant]
     Active Substance: SODIUM CHLORIDE
     Route: 065
     Dates: start: 20220911, end: 20220912
  346. ISOTONIC SODIUM CHLORIDE SOLUTION [Concomitant]
     Active Substance: SODIUM CHLORIDE
     Route: 065
     Dates: start: 20220913, end: 20220915
  347. ISOTONIC SODIUM CHLORIDE SOLUTION [Concomitant]
     Active Substance: SODIUM CHLORIDE
     Route: 065
     Dates: start: 20220916, end: 20220916
  348. ISOTONIC SODIUM CHLORIDE SOLUTION [Concomitant]
     Active Substance: SODIUM CHLORIDE
     Route: 065
     Dates: start: 20220917, end: 20220920
  349. ISOTONIC SODIUM CHLORIDE SOLUTION [Concomitant]
     Active Substance: SODIUM CHLORIDE
     Route: 065
     Dates: start: 20220921, end: 20220926
  350. ISOTONIC SODIUM CHLORIDE SOLUTION [Concomitant]
     Active Substance: SODIUM CHLORIDE
     Route: 065
     Dates: start: 20220927, end: 20220930
  351. CARBOCYSTEINE [Concomitant]
     Active Substance: CARBOCYSTEINE
     Indication: Product used for unknown indication
     Dosage: 1500 MG, THRICE DAILY (AFTER BREAKFAST, LUNCH AND DINNER)
     Route: 048
     Dates: start: 20220909, end: 20220930
  352. SODIUM CHLORIDE [Concomitant]
     Active Substance: SODIUM CHLORIDE
     Indication: Product used for unknown indication
     Route: 065
     Dates: start: 20220912, end: 20220912
  353. SODIUM CHLORIDE [Concomitant]
     Active Substance: SODIUM CHLORIDE
     Route: 065
     Dates: start: 20220913, end: 20220914
  354. SODIUM CHLORIDE [Concomitant]
     Active Substance: SODIUM CHLORIDE
     Route: 065
     Dates: start: 20220915, end: 20220916
  355. SODIUM CHLORIDE [Concomitant]
     Active Substance: SODIUM CHLORIDE
     Route: 065
     Dates: start: 20220917, end: 20220917
  356. ACETAMINOPHEN [Concomitant]
     Active Substance: ACETAMINOPHEN
     Indication: Product used for unknown indication
     Route: 065
     Dates: start: 20220921, end: 20220930
  357. VANCOMYCIN HYDROCHLORIDE [Concomitant]
     Active Substance: VANCOMYCIN HYDROCHLORIDE
     Indication: Product used for unknown indication
     Dosage: 0.75 G, ONCE DAILY
     Route: 065
     Dates: start: 20220921, end: 20220926
  358. WATER FOR INJECTION [Concomitant]
     Active Substance: WATER
     Indication: Product used for unknown indication
     Route: 065
     Dates: start: 20220921, end: 20220926
  359. MICAFUNGIN SODIUM [Concomitant]
     Active Substance: MICAFUNGIN SODIUM
     Indication: Product used for unknown indication
     Route: 065
     Dates: start: 20220921, end: 20220929
  360. LANSOPRAZOLE [Concomitant]
     Active Substance: LANSOPRAZOLE
     Indication: Product used for unknown indication
     Dosage: 15 MG, ONCE DAILY (AFTER BREAKFAST)
     Route: 048
     Dates: start: 20220922, end: 20220930
  361. PIPERACILLIN SODIUM\TAZOBACTAM SODIUM [Concomitant]
     Active Substance: PIPERACILLIN SODIUM\TAZOBACTAM SODIUM
     Indication: Product used for unknown indication
     Route: 065
     Dates: start: 20220923, end: 20220923
  362. PIPERACILLIN SODIUM\TAZOBACTAM SODIUM [Concomitant]
     Active Substance: PIPERACILLIN SODIUM\TAZOBACTAM SODIUM
     Route: 065
     Dates: start: 20220924, end: 20220930

REACTIONS (8)
  - Platelet count decreased [Not Recovered/Not Resolved]
  - Acute febrile neutrophilic dermatosis [Recovered/Resolved]
  - Differentiation syndrome [Recovered/Resolved]
  - Neutrophil count decreased [Not Recovered/Not Resolved]
  - Anaemia [Not Recovered/Not Resolved]
  - Pyrexia [Not Recovered/Not Resolved]
  - Fungal infection [Recovered/Resolved]
  - Bacterial infection [Recovered/Resolved]

NARRATIVE: CASE EVENT DATE: 20220523
